FAERS Safety Report 20613182 (Version 1)
Quarter: 2022Q1

REPORT INFORMATION
  Report Type: Spontaneous
  Country: US (occurrence: US)
  Receive Date: 20220318
  Receipt Date: 20220318
  Transmission Date: 20220423
  Serious: No
  Sender: FDA-Public Use
  Company Number: US-SA-SAC20220314001164

PATIENT
  Sex: Female

DRUGS (9)
  1. AUBAGIO [Suspect]
     Active Substance: TERIFLUNOMIDE
     Indication: Relapsing-remitting multiple sclerosis
     Dosage: 14 MG
     Route: 048
  2. ATORVASTATIN [Concomitant]
     Active Substance: ATORVASTATIN
     Dosage: 10MG
  3. CARBIDOPA [Concomitant]
     Active Substance: CARBIDOPA
  4. MODAFINIL [Concomitant]
     Active Substance: MODAFINIL
  5. MYRBETRIQ [Concomitant]
     Active Substance: MIRABEGRON
  6. REFRESH OPTIVE [Concomitant]
     Active Substance: CARBOXYMETHYLCELLULOSE SODIUM\GLYCERIN
  7. ZOLOFT [Concomitant]
     Active Substance: SERTRALINE HYDROCHLORIDE
  8. TAMSULOSIN [Concomitant]
     Active Substance: TAMSULOSIN
  9. DALFAMPRIDINE [Concomitant]
     Active Substance: DALFAMPRIDINE

REACTIONS (1)
  - Product dose omission issue [Unknown]
